FAERS Safety Report 5306784-2 (Version None)
Quarter: 2007Q2

REPORT INFORMATION
  Report Type: 
  Country: None (occurrence: None)
  Receive Date: 20070423
  Receipt Date: 20070423
  Transmission Date: 20071010
  Serious: Yes (Other)
  Sender: FDA-Public Use
  Company Number: None

PATIENT
  Age: 39 Year
  Sex: Female
  Weight: 90.7194 kg

DRUGS (1)
  1. ZELNORM [Suspect]
     Indication: CONSTIPATION
     Dosage: 2 A DAY PO
     Route: 048
     Dates: start: 20061019, end: 20070418

REACTIONS (6)
  - ABASIA [None]
  - ASTHENIA [None]
  - CONTUSION [None]
  - FATIGUE [None]
  - HEADACHE [None]
  - SOMNOLENCE [None]
